FAERS Safety Report 12849282 (Version 4)
Quarter: 2018Q4

REPORT INFORMATION
  Report Type: Spontaneous
  Country: DE (occurrence: DE)
  Receive Date: 20161014
  Receipt Date: 20181022
  Transmission Date: 20190204
  Serious: Yes (Other)
  Sender: FDA-Public Use
  Company Number: DE-TEVA-701945GER

PATIENT
  Age: 48 Year
  Sex: Female
  Weight: 62 kg

DRUGS (1)
  1. CIPROFLOXACIN 250 MG RATIOPHARM [Suspect]
     Active Substance: CIPROFLOXACIN
     Indication: CYSTITIS NONINFECTIVE
     Route: 048
     Dates: start: 20131021

REACTIONS (15)
  - Asthenia [Not Recovered/Not Resolved]
  - Choking [Not Recovered/Not Resolved]
  - Muscle rupture [Unknown]
  - Pain [Unknown]
  - Muscle rupture [Not Recovered/Not Resolved]
  - Depression [Unknown]
  - Gastrointestinal disorder [Not Recovered/Not Resolved]
  - Discomfort [Not Recovered/Not Resolved]
  - Tendon pain [Not Recovered/Not Resolved]
  - Vomiting [Unknown]
  - Monoplegia [Recovered/Resolved with Sequelae]
  - Vocal cord paralysis [Recovered/Resolved with Sequelae]
  - Visual impairment [Not Recovered/Not Resolved]
  - Myalgia [Not Recovered/Not Resolved]
  - Aphasia [Recovered/Resolved with Sequelae]

NARRATIVE: CASE EVENT DATE: 20131022
